FAERS Safety Report 5868745-4 (Version None)
Quarter: 2008Q3

REPORT INFORMATION
  Report Type: 
  Country: None (occurrence: None)
  Receive Date: 20080828
  Receipt Date: 20080818
  Transmission Date: 20090109
  Serious: Yes (Other)
  Sender: FDA-Public Use
  Company Number: 2008US002081

PATIENT
  Age: 56 Year
  Sex: Male

DRUGS (7)
  1. LEXISCAN [Suspect]
     Indication: CARDIAC STRESS TEST
     Dates: start: 20080804
  2. ASCORBIC ACID (ASCORBIC ACID) TABLET [Concomitant]
  3. DOCUSATE (DOCUSATE) ENEMA [Concomitant]
  4. BENZOCAINE (BENZOCAINE) ENEMA [Concomitant]
  5. OXYBUTYNIN (OXYBUTYNIN HYDROCHLORIDE) TABLET [Concomitant]
  6. ASPIRIN (CITRIC ACID) [Concomitant]
  7. MULTIVITAMIN [Concomitant]

REACTIONS (1)
  - SINUS ARREST [None]
